FAERS Safety Report 15437026 (Version 1)
Quarter: 2018Q3

REPORT INFORMATION
  Report Type: Report from Study
  Country: US (occurrence: US)
  Receive Date: 20180927
  Receipt Date: 20180927
  Transmission Date: 20181010
  Serious: Yes (Other)
  Sender: FDA-Public Use
  Company Number: US-CLOVIS ONCOLOGY-CLO-2018-000957

PATIENT
  Age: 70 Year
  Sex: Female

DRUGS (4)
  1. RUBRACA [Suspect]
     Active Substance: RUCAPARIB CAMSYLATE
     Dosage: 300 MG, QD
     Route: 048
     Dates: start: 201808, end: 20180819
  2. RUBRACA [Suspect]
     Active Substance: RUCAPARIB CAMSYLATE
     Dosage: 600 MG, BID
     Route: 048
     Dates: start: 20180706, end: 20180806
  3. RUBRACA [Suspect]
     Active Substance: RUCAPARIB CAMSYLATE
     Indication: OVARIAN CANCER
     Dosage: 600 MG, BID
     Route: 048
     Dates: start: 20180711, end: 20180730
  4. RUBRACA [Suspect]
     Active Substance: RUCAPARIB CAMSYLATE
     Dosage: 300 MG, BID
     Route: 048
     Dates: start: 20180814, end: 201808

REACTIONS (12)
  - Dyspnoea [Recovering/Resolving]
  - Diarrhoea [Recovering/Resolving]
  - Haemoglobin decreased [Not Recovered/Not Resolved]
  - Flatulence [Recovering/Resolving]
  - Nausea [Recovered/Resolved]
  - Dysgeusia [Recovering/Resolving]
  - Abdominal pain upper [Recovering/Resolving]
  - Constipation [Not Recovered/Not Resolved]
  - Dyspepsia [Recovering/Resolving]
  - Adverse event [Unknown]
  - Back pain [Recovering/Resolving]
  - Dizziness [Recovering/Resolving]

NARRATIVE: CASE EVENT DATE: 2018
